FAERS Safety Report 19245498 (Version 1)
Quarter: 2021Q2

REPORT INFORMATION
  Report Type: Spontaneous
  Country: US (occurrence: US)
  Receive Date: 20210511
  Receipt Date: 20210511
  Transmission Date: 20210717
  Serious: Yes (Death)
  Sender: FDA-Public Use
  Company Number: US-CELGENEUS-USA-20210502259

PATIENT
  Age: 80 Year
  Sex: Female

DRUGS (3)
  1. POMALIDOMIDE [Suspect]
     Active Substance: POMALIDOMIDE
     Indication: MONOCLONAL GAMMOPATHY
     Dosage: 4 MILLIGRAM
     Route: 048
     Dates: start: 20201209, end: 20210424
  2. POMALIDOMIDE [Suspect]
     Active Substance: POMALIDOMIDE
     Indication: PLASMA CELL MYELOMA
  3. POMALIDOMIDE [Suspect]
     Active Substance: POMALIDOMIDE
     Indication: PLASMA CELL LEUKAEMIA

REACTIONS (1)
  - Death [Fatal]

NARRATIVE: CASE EVENT DATE: 20210424
